FAERS Safety Report 19270820 (Version 1)
Quarter: 2021Q2

REPORT INFORMATION
  Report Type: Spontaneous
  Country: US (occurrence: US)
  Receive Date: 20210518
  Receipt Date: 20210518
  Transmission Date: 20210717
  Serious: No
  Sender: FDA-Public Use
  Company Number: US-GLENMARK PHARMACEUTICALS-2021GMK053255

PATIENT

DRUGS (6)
  1. TOPIRAMATE TABLETS USP, 200 MG [Suspect]
     Active Substance: TOPIRAMATE
     Indication: SEIZURE
  2. TOPIRAMATE TABLETS USP, 200 MG [Suspect]
     Active Substance: TOPIRAMATE
     Indication: NEUROPATHY PERIPHERAL
  3. TOPIRAMATE TABLETS USP, 200 MG [Suspect]
     Active Substance: TOPIRAMATE
     Indication: MIGRAINE
     Dosage: 200 MILLIGRAM, BID
     Route: 048
     Dates: start: 2011
  4. COZAAR [Concomitant]
     Active Substance: LOSARTAN POTASSIUM
     Indication: HYPERTENSION
     Dosage: 100 MILLIGRAM, BID
     Route: 048
     Dates: start: 1995
  5. AZITHROMYCIN ANHYDROUS. [Concomitant]
     Active Substance: AZITHROMYCIN ANHYDROUS
     Indication: IMPAIRED GASTRIC EMPTYING
     Dosage: 200MG/5ML, HALF TEASPOON ONCE A DAY
     Route: 048
  6. HUMALOG [Concomitant]
     Active Substance: INSULIN LISPRO
     Indication: TYPE 1 DIABETES MELLITUS
     Dosage: 24/7 AS NEEDED, 30 UNITS OR 34 UNITS A DAY
     Route: 065
     Dates: start: 1971, end: 2020

REACTIONS (6)
  - Intentional product use issue [Unknown]
  - Enlarged uvula [Unknown]
  - Product use in unapproved indication [Unknown]
  - Urticaria [Recovered/Resolved]
  - Drug hypersensitivity [Recovered/Resolved]
  - Product substitution issue [Unknown]

NARRATIVE: CASE EVENT DATE: 2011
